FAERS Safety Report 4803986-6 (Version None)
Quarter: 2005Q3

REPORT INFORMATION
  Report Type: 
  Country: None (occurrence: None)
  Receive Date: 20050920
  Receipt Date: 20050707
  Transmission Date: 20060218
  Serious: No
  Sender: FDA-Public Use
  Company Number: US-YAMANOUCHI-YPA20050369

PATIENT
  Age: 58 Year
  Sex: Female

DRUGS (7)
  1. VESICARE [Suspect]
     Indication: HYPERTONIC BLADDER
     Dates: start: 20050420
  2. ZOLOFT [Concomitant]
  3. DYAZIDE [Concomitant]
  4. FIORICET [Concomitant]
  5. XANAX [Concomitant]
  6. ZYRTEC [Concomitant]
  7. ZETIA [Concomitant]

REACTIONS (4)
  - ABDOMINAL PAIN [None]
  - CONFUSIONAL STATE [None]
  - PARAESTHESIA [None]
  - TREMOR [None]
